FAERS Safety Report 9425845 (Version 1)
Quarter: 2013Q3

REPORT INFORMATION
  Report Type: Spontaneous
  Country: FR (occurrence: FR)
  Receive Date: 20130729
  Receipt Date: 20130729
  Transmission Date: 20140515
  Serious: Yes (Other)
  Sender: FDA-Public Use
  Company Number: FR-ELI_LILLY_AND_COMPANY-FR201307006416

PATIENT
  Age: 75 Year
  Sex: Male

DRUGS (1)
  1. FORSTEO [Suspect]
     Dosage: 20 UG, UNK
     Route: 058
     Dates: start: 201201, end: 201209

REACTIONS (3)
  - Neoplasm malignant [Unknown]
  - Dermal cyst [Unknown]
  - Lung infection [Unknown]
